FAERS Safety Report 7463272-5 (Version None)
Quarter: 2011Q2

REPORT INFORMATION
  Report Type: 
  Country: None (occurrence: None)
  Receive Date: 20110506
  Receipt Date: 20110503
  Transmission Date: 20111010
  Serious: Yes (Other)
  Sender: FDA-Public Use
  Company Number: PT-ROCHE-775150

PATIENT
  Sex: Female
  Weight: 62 kg

DRUGS (2)
  1. XENICAL [Suspect]
     Route: 048
     Dates: start: 20110426
  2. XENICAL [Suspect]
     Indication: WEIGHT CONTROL
     Route: 048
     Dates: start: 20100801

REACTIONS (3)
  - TONGUE DISORDER [None]
  - VAGINAL HAEMORRHAGE [None]
  - ORAL DISORDER [None]
